FAERS Safety Report 8926550 (Version 2)
Quarter: 2013Q1

REPORT INFORMATION
  Report Type: Spontaneous
  Country: PH (occurrence: PH)
  Receive Date: 20121127
  Receipt Date: 20130129
  Transmission Date: 20140127
  Serious: Yes (Death)
  Sender: FDA-Public Use
  Company Number: PHHY2012PH105820

PATIENT
  Sex: Male

DRUGS (1)
  1. AFINITOR [Suspect]
     Indication: RENAL CELL CARCINOMA
     Dosage: 10 MG, DAILY
     Route: 048

REACTIONS (15)
  - Multi-organ failure [Fatal]
  - Metastases to lung [Fatal]
  - Metastases to central nervous system [Fatal]
  - Pneumonia [Fatal]
  - Renal failure [Fatal]
  - Azotaemia [Fatal]
  - Blood creatinine increased [Fatal]
  - Pyrexia [Fatal]
  - Oedema [Fatal]
  - Rash [Fatal]
  - Urine output decreased [Fatal]
  - Infection [Fatal]
  - Chromaturia [Fatal]
  - Lethargy [Fatal]
  - Confusional state [Fatal]
